FAERS Safety Report 14177695 (Version 2)
Quarter: 2017Q4

REPORT INFORMATION
  Report Type: Spontaneous
  Country: US (occurrence: US)
  Receive Date: 20171110
  Receipt Date: 20171129
  Transmission Date: 20180321
  Serious: Yes (Hospitalization, Other)
  Sender: FDA-Public Use
  Company Number: US-B.I. PHARMACEUTICALS,INC./RIDGEFIELD-2017-BI-060363

PATIENT
  Age: 76 Year
  Sex: Male

DRUGS (9)
  1. ALLOPURINOL. [Concomitant]
     Active Substance: ALLOPURINOL
     Indication: GOUT
     Dosage: ONE TABLET A DAY;  FORM STRENGTH: 300 MG; FORMULATION: TABLET
     Route: 048
  2. VERAPAMIL [Concomitant]
     Active Substance: VERAPAMIL HYDROCHLORIDE
     Indication: HYPERTENSION
     Dosage: ONE TABLET TWICE A DAY;  FORM STRENGTH: 180 MG; FORMULATION: TABLET
     Route: 048
  3. STIOLTO RESPIMAT [Suspect]
     Active Substance: OLODATEROL HYDROCHLORIDE\TIOTROPIUM BROMIDE MONOHYDRATE
     Indication: CHRONIC OBSTRUCTIVE PULMONARY DISEASE
     Route: 055
     Dates: start: 201705
  4. AVODART [Concomitant]
     Active Substance: DUTASTERIDE
     Indication: PROPHYLAXIS
     Dosage: ONE CAPSULE DAILY;  FORM STRENGTH: 0.5 MG; FORMULATION: CAPSULE
     Route: 048
  5. B COMPLEX, VITAMIN C, FOLATE ACID [Concomitant]
     Indication: FULL BLOOD COUNT DECREASED
     Dosage: ONE TABLET DAILY;  FORM STRENGTH: 0.8 MG; FORMULATION: TABLET
     Route: 048
  6. TRAMADOL. [Concomitant]
     Active Substance: TRAMADOL
     Indication: ARTHRITIS
     Dosage: ONE TABLET EVERY FOUR HOURS AS NEEDED;  FORM STRENGTH: 50 MG; FORMULATION: TABLET
     Route: 048
  7. VITAMIN D3 [Concomitant]
     Active Substance: CHOLECALCIFEROL
     Indication: VITAMIN D DECREASED
     Dosage: ONE TABLET DAILY;  FORM STRENGTH: 1000 UNITS; FORMULATION: TABLET
     Route: 048
  8. AVODART [Concomitant]
     Active Substance: DUTASTERIDE
     Indication: PROSTATOMEGALY
  9. FUROSEMIDE. [Concomitant]
     Active Substance: FUROSEMIDE
     Indication: DRUG THERAPY
     Dosage: ONE TABLET TWICE DAILY;  FORM STRENGTH: 40 MG; FORMULATION: TABLET
     Route: 048

REACTIONS (1)
  - Cerebrovascular accident [Not Recovered/Not Resolved]

NARRATIVE: CASE EVENT DATE: 201706
